FAERS Safety Report 8843604 (Version 2)
Quarter: 2012Q4

REPORT INFORMATION
  Report Type: Report from Study
  Country: US (occurrence: US)
  Receive Date: 20121016
  Receipt Date: 20121026
  Transmission Date: 20130627
  Serious: No
  Sender: FDA-Public Use
  Company Number: US-VERTEX PHARMACEUTICAL INC.-2012-022234

PATIENT
  Age: 46 Year
  Sex: Male
  Weight: 87.98 kg

DRUGS (4)
  1. VX-950 [Suspect]
     Indication: HEPATITIS C
     Dosage: 750 mg, tid
     Route: 048
     Dates: start: 20120814
  2. PEGASYS [Concomitant]
     Indication: HEPATITIS C
     Dosage: UNK
     Dates: start: 2012
  3. RIBAPAK [Concomitant]
     Indication: HEPATITIS C
     Dosage: UNK
     Dates: start: 2012
  4. DEPO TESTOSTERONE [Concomitant]

REACTIONS (5)
  - Arthralgia [Recovered/Resolved]
  - Fatigue [Recovered/Resolved]
  - Rash macular [Recovered/Resolved]
  - Pruritus [Recovered/Resolved]
  - Nausea [Recovered/Resolved]
